FAERS Safety Report 18388721 (Version 1)
Quarter: 2020Q4

REPORT INFORMATION
  Report Type: Spontaneous
  Country: US (occurrence: US)
  Receive Date: 20201015
  Receipt Date: 20201015
  Transmission Date: 20210114
  Serious: Yes (Hospitalization, Other)
  Sender: FDA-Public Use
  Company Number: US-ASTRAZENECA-2020SF31460

PATIENT
  Sex: Female
  Weight: 77.6 kg

DRUGS (2)
  1. FARXIGA [Suspect]
     Active Substance: DAPAGLIFLOZIN PROPANEDIOL
     Indication: DIABETES MELLITUS
     Dosage: DAILY
     Route: 048
     Dates: start: 20161014, end: 201904
  2. QTERN [Suspect]
     Active Substance: DAPAGLIFLOZIN\SAXAGLIPTIN HYDROCHLORIDE
     Indication: DIABETES MELLITUS
     Dosage: DAILY
     Route: 065
     Dates: start: 20190402, end: 202002

REACTIONS (3)
  - Genital abscess [Not Recovered/Not Resolved]
  - Abscess limb [Not Recovered/Not Resolved]
  - Illness [Not Recovered/Not Resolved]
